FAERS Safety Report 15359865 (Version 1)
Quarter: 2018Q4

REPORT INFORMATION
  Report Type: Spontaneous
  Country: ES (occurrence: ES)
  Receive Date: 20180907
  Receipt Date: 20180907
  Transmission Date: 20190204
  Serious: Yes (Hospitalization)
  Sender: FDA-Public Use
  Company Number: ES-SUN PHARMACEUTICAL INDUSTRIES LTD-2018RR-183750

PATIENT
  Age: 86 Year
  Sex: Female

DRUGS (7)
  1. ORFIDAL [Concomitant]
     Active Substance: LORAZEPAM
     Indication: PRODUCT USED FOR UNKNOWN INDICATION
     Dosage: SI ANSIEDAD () ; AS NECESSARY
     Route: 048
  2. REXER 15 [Suspect]
     Active Substance: MIRTAZAPINE
     Indication: DEPRESSION
     Dosage: 0-0-1
     Route: 048
     Dates: start: 201709
  3. SULPIRIDA (3076A) [Concomitant]
     Indication: PRODUCT USED FOR UNKNOWN INDICATION
     Dosage: 1-0-1 ()
     Route: 048
     Dates: start: 201709
  4. COAPROVEL 300 MG/12,5 MG COMPRIMIDOS RECUBIERTOS CON PELICULA, 28 C... [Concomitant]
     Indication: PRODUCT USED FOR UNKNOWN INDICATION
     Dosage: 1/24H
     Route: 048
     Dates: start: 200911
  5. ADIRO 100 MG COMPRIMIDOS GASTRORRESISTENTES EFG , 30 COMPRIMIDOS [Concomitant]
     Active Substance: ASPIRIN
     Indication: PRODUCT USED FOR UNKNOWN INDICATION
     Dosage: 1/24H
     Route: 048
     Dates: start: 201103
  6. ATORVASTATINA NORMON 20 MG COMPRIMIDOS RECUBIERTOS CON PELICULA EFG... [Concomitant]
     Indication: PRODUCT USED FOR UNKNOWN INDICATION
     Dosage: 1/24H
     Route: 048
     Dates: start: 201704
  7. SERTRALINE [Suspect]
     Active Substance: SERTRALINE HYDROCHLORIDE
     Indication: DEPRESSION
     Dosage: 1-1/2-0
     Route: 048
     Dates: start: 201709

REACTIONS (3)
  - Fall [Recovered/Resolved]
  - Head injury [Recovered/Resolved]
  - Syncope [Recovered/Resolved]

NARRATIVE: CASE EVENT DATE: 20171006
